FAERS Safety Report 15389617 (Version 1)
Quarter: 2018Q3

REPORT INFORMATION
  Report Type: Spontaneous
  Country: US (occurrence: US)
  Receive Date: 20180917
  Receipt Date: 20180917
  Transmission Date: 20181010
  Serious: No
  Sender: FDA-Public Use
  Company Number: US-TEVA-818626ACC

PATIENT
  Sex: Male

DRUGS (1)
  1. FENTANYL. [Suspect]
     Active Substance: FENTANYL
     Indication: PAIN
     Dosage: DOSE STRENGTH:  25MCG 5
     Dates: start: 201706

REACTIONS (3)
  - Application site vesicles [Unknown]
  - Hot flush [Recovering/Resolving]
  - Application site erythema [Unknown]

NARRATIVE: CASE EVENT DATE: 201708
